FAERS Safety Report 7490639-1 (Version None)
Quarter: 2011Q2

REPORT INFORMATION
  Report Type: 
  Country: None (occurrence: None)
  Receive Date: 20110519
  Receipt Date: 20110505
  Transmission Date: 20111010
  Serious: Yes (Death)
  Sender: FDA-Public Use
  Company Number: DK-JNJFOC-20110405162

PATIENT
  Sex: Male

DRUGS (3)
  1. METHOTREXATE [Concomitant]
     Indication: UVEITIS
  2. REMICADE [Suspect]
     Indication: UVEITIS
     Dosage: INITIATED 5 MONTHS AGO
     Route: 042
  3. PREDNISOLONE [Concomitant]
     Indication: UVEITIS

REACTIONS (1)
  - PNEUMONIA HERPES VIRAL [None]
